FAERS Safety Report 11509756 (Version 1)
Quarter: 2015Q3

REPORT INFORMATION
  Report Type: Spontaneous
  Country: US (occurrence: US)
  Receive Date: 20150915
  Receipt Date: 20150915
  Transmission Date: 20151125
  Serious: No
  Sender: FDA-Public Use
  Company Number: US-JNJFOC-20150611070

PATIENT
  Age: 12 Year
  Sex: Male
  Weight: 58.97 kg

DRUGS (2)
  1. TYLENOL CHILDRENS SUSPENSION [Suspect]
     Active Substance: ACETAMINOPHEN
     Indication: PYREXIA
     Dosage: 15 ML AS NEEDED
     Route: 048
  2. TYLENOL CHILDRENS SUSPENSION [Suspect]
     Active Substance: ACETAMINOPHEN
     Indication: PAIN
     Dosage: 15 ML AS NEEDED
     Route: 048

REACTIONS (1)
  - Wrong technique in product usage process [Unknown]
